FAERS Safety Report 8437825-1 (Version None)
Quarter: 2012Q2

REPORT INFORMATION
  Report Type: 
  Country: None (occurrence: None)
  Receive Date: 20120614
  Receipt Date: 20120515
  Transmission Date: 20120825
  Serious: No
  Sender: FDA-Public Use
  Company Number: US-AMGEN-USASP2012030472

PATIENT
  Age: 87 Year
  Sex: Female

DRUGS (3)
  1. ANTIHYPERTENSIVES [Concomitant]
  2. PROLIA [Suspect]
     Indication: OSTEOPOROSIS POSTMENOPAUSAL
     Dosage: 60 MG, Q6MO
     Dates: start: 20111103
  3. METFORMIN HCL [Concomitant]

REACTIONS (4)
  - TOOTHACHE [None]
  - DENTAL CARIES [None]
  - FEELING ABNORMAL [None]
  - PAIN [None]
